FAERS Safety Report 15708868 (Version 1)
Quarter: 2018Q4

REPORT INFORMATION
  Report Type: Spontaneous
  Country: HK (occurrence: HK)
  Receive Date: 20181211
  Receipt Date: 20181211
  Transmission Date: 20190205
  Serious: Yes (Other)
  Sender: FDA-Public Use
  Company Number: HK-LUPIN PHARMACEUTICALS INC.-2018-08447

PATIENT
  Age: 14 Year
  Sex: Female

DRUGS (2)
  1. SULFAMETHOXAZOLE AND TRIMETHOPRIM [Suspect]
     Active Substance: SULFAMETHOXAZOLE\TRIMETHOPRIM
     Indication: SALMONELLA SEPSIS
     Dosage: UNK
     Route: 065
  2. CEFTRIAXONE. [Concomitant]
     Active Substance: CEFTRIAXONE
     Indication: SALMONELLA SEPSIS
     Dosage: UNK
     Route: 065

REACTIONS (7)
  - Cholangitis [Recovering/Resolving]
  - Palmoplantar keratoderma [Unknown]
  - Drug reaction with eosinophilia and systemic symptoms [Unknown]
  - Psoriasis [Unknown]
  - Papule [Unknown]
  - Alopecia totalis [Unknown]
  - Vitiligo [Unknown]
